FAERS Safety Report 22133609 (Version 1)
Quarter: 2023Q1

REPORT INFORMATION
  Report Type: Other
  Country: DE (occurrence: None)
  Receive Date: 20230324
  Receipt Date: 20230324
  Transmission Date: 20230418
  Serious: Yes (Disabling, Other)
  Sender: FDA-Public Use
  Company Number: DE-Nivagen-000040

PATIENT
  Age: 11 Year
  Sex: Male

DRUGS (1)
  1. TEMOZOLOMIDE [Suspect]
     Active Substance: TEMOZOLOMIDE
     Indication: Glioblastoma

REACTIONS (4)
  - Hemiparesis [Not Recovered/Not Resolved]
  - Disease progression [Not Recovered/Not Resolved]
  - Dystonia [Not Recovered/Not Resolved]
  - Neoplasm recurrence [Not Recovered/Not Resolved]
